FAERS Safety Report 5858040-1 (Version None)
Quarter: 2008Q3

REPORT INFORMATION
  Report Type: 
  Country: None (occurrence: None)
  Receive Date: 20080826
  Receipt Date: 20080818
  Transmission Date: 20090109
  Serious: Yes (Hospitalization)
  Sender: FDA-Public Use
  Company Number: US-MERCK-0705USA05346

PATIENT
  Age: 44 Year
  Sex: Female
  Weight: 51 kg

DRUGS (2)
  1. FOSAMAX [Suspect]
     Indication: OSTEOPOROSIS
     Route: 048
     Dates: start: 20020501
  2. FOSAMAX [Suspect]
     Route: 048
     Dates: start: 20000101, end: 20060301

REACTIONS (43)
  - ADRENAL DISORDER [None]
  - ADVERSE DRUG REACTION [None]
  - ALLERGY TO ARTHROPOD STING [None]
  - ARTHRALGIA [None]
  - ASTHENIA [None]
  - BRONCHITIS [None]
  - CARDIAC DISORDER [None]
  - CARDIAC MURMUR [None]
  - CHRONIC OBSTRUCTIVE PULMONARY DISEASE [None]
  - CONTUSION [None]
  - DENTAL CARIES [None]
  - DEPRESSION [None]
  - DIZZINESS [None]
  - DYSPEPSIA [None]
  - EPICONDYLITIS [None]
  - FATIGUE [None]
  - FIBROCYSTIC BREAST DISEASE [None]
  - GOITRE [None]
  - HAEMORRHOIDS [None]
  - HEART VALVE INCOMPETENCE [None]
  - HYPERTENSION [None]
  - HYPOAESTHESIA [None]
  - HYPOKALAEMIA [None]
  - LIBIDO DECREASED [None]
  - LUNG DISORDER [None]
  - MITRAL VALVE PROLAPSE [None]
  - ORAL PAIN [None]
  - OSTEOARTHRITIS [None]
  - OVERDOSE [None]
  - PAIN IN JAW [None]
  - PALPITATIONS [None]
  - PERIODONTAL DISEASE [None]
  - RASH [None]
  - RAYNAUD'S PHENOMENON [None]
  - RESORPTION BONE INCREASED [None]
  - SINUS TACHYCARDIA [None]
  - SWELLING [None]
  - TEMPOROMANDIBULAR JOINT SYNDROME [None]
  - THINKING ABNORMAL [None]
  - TRISMUS [None]
  - UNDERWEIGHT [None]
  - UPPER LIMB FRACTURE [None]
  - VENTRICULAR EXTRASYSTOLES [None]
